FAERS Safety Report 23218691 (Version 1)
Quarter: 2023Q4

REPORT INFORMATION
  Report Type: Spontaneous
  Country: FR (occurrence: None)
  Receive Date: 20231122
  Receipt Date: 20231122
  Transmission Date: 20240110
  Serious: Yes (Other)
  Sender: FDA-Public Use
  Company Number: 2023A221743

PATIENT

DRUGS (1)
  1. SYMBICORT [Suspect]
     Active Substance: BUDESONIDE\FORMOTEROL FUMARATE DIHYDRATE
     Indication: Laryngitis
     Dosage: 200, UNKNOWN UNKNOWN
     Route: 055

REACTIONS (6)
  - Aphonia [Unknown]
  - COVID-19 [Unknown]
  - Lung disorder [Unknown]
  - Throat irritation [Unknown]
  - Off label use [Unknown]
  - Drug ineffective [Unknown]
